FAERS Safety Report 15937066 (Version 1)
Quarter: 2019Q1

REPORT INFORMATION
  Report Type: Spontaneous
  Country: CZ (occurrence: CZ)
  Receive Date: 20190208
  Receipt Date: 20190208
  Transmission Date: 20190417
  Serious: Yes (Other)
  Sender: FDA-Public Use
  Company Number: CZ-ACCORD-106257

PATIENT
  Sex: Female

DRUGS (6)
  1. FLUOROURACIL. [Suspect]
     Active Substance: FLUOROURACIL
     Indication: COLORECTAL ADENOCARCINOMA
     Dosage: ALSO ON 25-APR-2016 IN FOLFIRI REGIMEN
     Dates: start: 20150515
  2. AVASTIN [Suspect]
     Active Substance: BEVACIZUMAB
     Indication: COLORECTAL ADENOCARCINOMA
     Dosage: SECOND LINE TREATMENT WAS INITIATED ON 25-APR-2016
     Dates: start: 20150515, end: 201604
  3. FOLINIC ACID [Suspect]
     Active Substance: LEUCOVORIN
     Indication: COLORECTAL ADENOCARCINOMA
     Dosage: ALSO FROM 25-APR-2016 IN FOLFIRI REGIMEN
     Dates: start: 20150515
  4. OXALIPLATIN. [Suspect]
     Active Substance: OXALIPLATIN
     Indication: COLORECTAL ADENOCARCINOMA
     Dates: start: 20150515
  5. IRINOTECAN [Suspect]
     Active Substance: IRINOTECAN
     Indication: COLORECTAL ADENOCARCINOMA
     Dates: start: 20160425
  6. CAPECITABINE. [Concomitant]
     Active Substance: CAPECITABINE
     Indication: COLORECTAL ADENOCARCINOMA
     Dosage: EVERY 3 WEEKS
     Dates: end: 201604

REACTIONS (3)
  - Neurotoxicity [Unknown]
  - Haematotoxicity [Unknown]
  - Aphthous ulcer [Unknown]
